FAERS Safety Report 10241654 (Version 1)
Quarter: 2014Q2

REPORT INFORMATION
  Report Type: Spontaneous
  Country: US (occurrence: US)
  Receive Date: 20140617
  Receipt Date: 20140617
  Transmission Date: 20141212
  Serious: Yes (Hospitalization, Other)
  Sender: FDA-Public Use
  Company Number: US-B.I. PHARMACEUTICALS,INC./RIDGEFIELD-2014-BI-27019BP

PATIENT
  Age: 93 Year
  Sex: Female

DRUGS (6)
  1. PRADAXA [Suspect]
     Indication: ATRIAL FIBRILLATION
     Dosage: 150 MG
     Route: 048
  2. LASIX [Concomitant]
     Indication: CARDIAC FAILURE CONGESTIVE
     Dosage: 40 MG
     Route: 048
  3. DIGOXIN [Concomitant]
     Dosage: 0.125 MCG
     Route: 048
  4. LYRICA [Concomitant]
     Indication: BACK PAIN
     Dosage: 75 MG
     Route: 048
  5. LIDOCAINE [Concomitant]
     Dosage: FORMULATION: PATCH, DOSE PER APPLICATION: 5%
     Route: 061
  6. METOPROLOL XL [Concomitant]
     Route: 048

REACTIONS (2)
  - Pneumonia [Not Recovered/Not Resolved]
  - Macular degeneration [Unknown]
